FAERS Safety Report 21403893 (Version 1)
Quarter: 2022Q4

REPORT INFORMATION
  Report Type: Spontaneous
  Country: CN (occurrence: CN)
  Receive Date: 20221003
  Receipt Date: 20221003
  Transmission Date: 20230112
  Serious: Yes (Hospitalization)
  Sender: FDA-Public Use
  Company Number: CN-ELI_LILLY_AND_COMPANY-CN202209012527

PATIENT
  Age: 44 Year
  Sex: Female
  Weight: 51 kg

DRUGS (2)
  1. ABEMACICLIB [Suspect]
     Active Substance: ABEMACICLIB
     Indication: Breast cancer female
     Dosage: 100 MG, DAILY
     Route: 048
     Dates: start: 20220815, end: 20220830
  2. FULVESTRANT [Suspect]
     Active Substance: FULVESTRANT
     Indication: Breast cancer female
     Dosage: 0.5 G, EVERY 28 DAYS
     Route: 030
     Dates: start: 20220815, end: 20220815

REACTIONS (1)
  - Myelosuppression [Not Recovered/Not Resolved]

NARRATIVE: CASE EVENT DATE: 20220830
